FAERS Safety Report 25478097 (Version 2)
Quarter: 2025Q3

REPORT INFORMATION
  Report Type: Spontaneous
  Country: EU (occurrence: EU)
  Receive Date: 20250625
  Receipt Date: 20250702
  Transmission Date: 20251020
  Serious: Yes (Death, Hospitalization)
  Sender: SANDOZ
  Company Number: EU-ROCHE-2853412

PATIENT
  Age: 38 Year
  Sex: Female

DRUGS (10)
  1. BUSULFAN [Suspect]
     Active Substance: BUSULFAN
     Indication: Prophylaxis against transplant rejection
     Dosage: 3.2 MG/KG QD, ON DAYS MINUS 6 TO MINUS 3
     Route: 042
  2. BUSULFAN [Suspect]
     Active Substance: BUSULFAN
     Indication: Bone marrow conditioning regimen
  3. CYCLOPHOSPHAMIDE [Suspect]
     Active Substance: CYCLOPHOSPHAMIDE
     Indication: Prophylaxis against transplant rejection
     Dosage: 50 MG/KG QD ON DAYS PLUS 3 AND PLUS 4
     Route: 065
  4. FLUDARABINE [Suspect]
     Active Substance: FLUDARABINE PHOSPHATE
     Indication: Prophylaxis against transplant rejection
     Dosage: 40 MG/M2 QD ON DAYS MINUS 6 TO MINUS 3
     Route: 065
  5. FLUDARABINE [Suspect]
     Active Substance: FLUDARABINE PHOSPHATE
     Indication: Bone marrow conditioning regimen
  6. MYCOPHENOLATE MOFETIL [Suspect]
     Active Substance: MYCOPHENOLATE MOFETIL
     Indication: Prophylaxis against transplant rejection
     Dosage: 10 MILLIGRAM/KILOGRAM, QD
     Route: 065
  7. MYCOPHENOLATE MOFETIL [Suspect]
     Active Substance: MYCOPHENOLATE MOFETIL
     Indication: Bone marrow conditioning regimen
     Dosage: UNK, BID, TWO TIMES A DAY FOR THREE WEEKS
     Route: 065
  8. RITUXIMAB [Suspect]
     Active Substance: RITUXIMAB
     Indication: Prophylaxis against transplant rejection
     Dosage: 375 MILLIGRAM/SQ. METER, QW, SIX DOSES  ADMINISTERED WEEKLY STARTING FROM DAY -35
     Route: 042
  9. RITUXIMAB [Suspect]
     Active Substance: RITUXIMAB
     Indication: Bone marrow conditioning regimen
  10. Immunoglobulin [Concomitant]
     Indication: Bone marrow conditioning regimen
     Dosage: 0.4 MILLIGRAM/KILOGRAM, QD
     Route: 042

REACTIONS (2)
  - Intracranial pressure increased [Fatal]
  - Venoocclusive liver disease [Fatal]
